FAERS Safety Report 5441207-4 (Version None)
Quarter: 2007Q3

REPORT INFORMATION
  Report Type: 
  Country: None (occurrence: None)
  Receive Date: 20070901
  Receipt Date: 20070822
  Transmission Date: 20080115
  Serious: Yes (Hospitalization, Other)
  Sender: FDA-Public Use
  Company Number: US-PFIZER INC-2007070556

PATIENT
  Sex: Female
  Weight: 72 kg

DRUGS (5)
  1. DILANTIN [Suspect]
     Indication: CONVULSION
  2. LIPITOR [Concomitant]
  3. LOTENSIN [Concomitant]
  4. PROZAC [Concomitant]
  5. IBUPROFEN [Concomitant]

REACTIONS (2)
  - ANTICONVULSANT DRUG LEVEL INCREASED [None]
  - CONVULSION [None]
